FAERS Safety Report 7402739-2 (Version None)
Quarter: 2011Q2

REPORT INFORMATION
  Report Type: 
  Country: None (occurrence: None)
  Receive Date: 20110408
  Receipt Date: 20110330
  Transmission Date: 20111010
  Serious: Yes (Hospitalization, Other)
  Sender: FDA-Public Use
  Company Number: GB-ROCHE-766307

PATIENT
  Sex: Female
  Weight: 109.3 kg

DRUGS (2)
  1. DOCETAXEL [Suspect]
     Indication: BREAST CANCER
     Dosage: CYCLE NO 1.
     Route: 065
     Dates: start: 20110311
  2. BEVACIZUMAB [Suspect]
     Indication: BREAST CANCER
     Dosage: CYCLE NO 1
     Route: 065
     Dates: start: 20110311

REACTIONS (2)
  - FEBRILE NEUTROPENIA [None]
  - LUNG INFILTRATION [None]
